FAERS Safety Report 9672035 (Version 3)
Quarter: 2014Q2

REPORT INFORMATION
  Report Type: Report from Study
  Country: JP (occurrence: JP)
  Receive Date: 20131106
  Receipt Date: 20140423
  Transmission Date: 20141212
  Serious: Yes (Hospitalization)
  Sender: FDA-Public Use
  Company Number: JP-GLAXOSMITHKLINE-B0938103A

PATIENT
  Age: 40 Year
  Sex: Male
  Weight: 64 kg

DRUGS (2)
  1. VOTRIENT 200MG [Suspect]
     Indication: SYNOVIAL SARCOMA
     Dosage: 800MG PER DAY
     Route: 048
     Dates: start: 20130220, end: 20131010
  2. DECADRON [Concomitant]
     Route: 048

REACTIONS (4)
  - Dermatitis [Recovering/Resolving]
  - Pneumothorax [Recovered/Resolved]
  - Malaise [Not Recovered/Not Resolved]
  - Decreased appetite [Not Recovered/Not Resolved]
